FAERS Safety Report 4951578-0 (Version None)
Quarter: 2006Q1

REPORT INFORMATION
  Report Type: 
  Country: None (occurrence: None)
  Receive Date: 20060317
  Receipt Date: 20060301
  Transmission Date: 20060701
  Serious: Yes (Other)
  Sender: FDA-Public Use
  Company Number: 8015375

PATIENT
  Age: 10 Year
  Sex: Female
  Weight: 20.9 kg

DRUGS (16)
  1. KEPPRA [Suspect]
     Indication: EPILEPSY
     Dosage: D PO
     Route: 048
  2. KEPPRA [Suspect]
     Indication: EPILEPSY
     Dosage: 1250 MG /D PO
     Route: 048
     Dates: end: 20051101
  3. KEPPRA [Suspect]
     Indication: EPILEPSY
     Dosage: 1500 MG /D PO
     Route: 048
     Dates: start: 20051101, end: 20060104
  4. KEPPRA [Suspect]
     Indication: EPILEPSY
     Dosage: 1250 MG /D PO
     Route: 048
     Dates: start: 20060105
  5. TOPAMAX [Suspect]
     Indication: EPILEPSY
     Dosage: 162.5 MG /D PO
     Route: 048
  6. PHENOBARBITAL TAB [Concomitant]
  7. POTASSIUM PHOSPHATES [Concomitant]
  8. MIRALAX [Concomitant]
  9. CALCIUM GLUCONATE [Concomitant]
  10. MAGNESIUM [Concomitant]
  11. ZINC [Concomitant]
  12. PULMICORT [Concomitant]
  13. ROBINUL [Concomitant]
  14. SYNTHROID [Concomitant]
  15. TRIAMCINOLONE [Concomitant]
  16. MEPALEX [Concomitant]

REACTIONS (12)
  - BLOOD ALBUMIN INCREASED [None]
  - BLOOD GLUCOSE DECREASED [None]
  - GRANULOCYTE COUNT DECREASED [None]
  - LIPIDS INCREASED [None]
  - MEAN CELL HAEMOGLOBIN CONCENTRATION INCREASED [None]
  - MEAN CELL HAEMOGLOBIN INCREASED [None]
  - MEAN CELL VOLUME INCREASED [None]
  - MONOCYTE PERCENTAGE INCREASED [None]
  - NEUTROPENIA [None]
  - PROTEIN TOTAL INCREASED [None]
  - RED BLOOD CELL COUNT DECREASED [None]
  - WHITE BLOOD CELL COUNT DECREASED [None]
